FAERS Safety Report 20570549 (Version 1)
Quarter: 2022Q1

REPORT INFORMATION
  Report Type: Report from Study
  Country: BR (occurrence: BR)
  Receive Date: 20220309
  Receipt Date: 20220309
  Transmission Date: 20220423
  Serious: Yes (Hospitalization, Other)
  Sender: FDA-Public Use
  Company Number: BR-NOVARTISPH-NVSC2022BR052755

PATIENT
  Sex: Female

DRUGS (1)
  1. ENTRESTO [Suspect]
     Active Substance: SACUBITRIL\VALSARTAN
     Indication: Product used for unknown indication
     Dosage: 50 MG (24/26 MG), Q2W (USE FOR 15 DAYS)
     Route: 065
     Dates: start: 20220228

REACTIONS (11)
  - Pneumonia [Unknown]
  - Fatigue [Unknown]
  - Cough [Not Recovered/Not Resolved]
  - Pleural effusion [Not Recovered/Not Resolved]
  - Illness [Unknown]
  - Pulmonary oedema [Unknown]
  - Infection [Not Recovered/Not Resolved]
  - Cerebrovascular accident [Not Recovered/Not Resolved]
  - Cardiac disorder [Unknown]
  - Cardiomegaly [Unknown]
  - Inappropriate schedule of product administration [Unknown]
